FAERS Safety Report 5269571-X (Version None)
Quarter: 2007Q1

REPORT INFORMATION
  Report Type: 
  Country: None (occurrence: None)
  Receive Date: 20070314
  Receipt Date: 20070306
  Transmission Date: 20070707
  Serious: Yes (Life-Threatening)
  Sender: FDA-Public Use
  Company Number: 237755

PATIENT
  Age: 60 Year
  Sex: Male

DRUGS (5)
  1. RITUXAN (RITUXIMAB) CON FOR SOLUTION FOR INFUSION [Suspect]
     Indication: NON-HODGKIN'S LYMPHOMA
     Dates: start: 20030101
  2. DOXORUBICIN HCL [Concomitant]
  3. ONCOVIN [Concomitant]
  4. CYCLOPHOSPHAMIDE [Concomitant]
  5. PREDNISOLONE [Concomitant]

REACTIONS (1)
  - OESOPHAGEAL CARCINOMA [None]
